FAERS Safety Report 4311664-5 (Version None)
Quarter: 2004Q1

REPORT INFORMATION
  Report Type: 
  Country: None (occurrence: None)
  Receive Date: 20040302
  Receipt Date: 20031204
  Transmission Date: 20041129
  Serious: No
  Sender: FDA-Public Use
  Company Number: 200329540BWH

PATIENT
  Age: 68 Year
  Sex: Male
  Weight: 58.9676 kg

DRUGS (6)
  1. LEVITRA [Suspect]
     Indication: ERECTILE DYSFUNCTION
     Dosage: 10 MG, PRN, ORAL
     Route: 048
     Dates: start: 20031202
  2. GLUCOPHAGE [Concomitant]
  3. GLYSET [Concomitant]
  4. GLUCOTROL [Concomitant]
  5. DIOVAN [Concomitant]
  6. ZETIA [Concomitant]

REACTIONS (1)
  - ERYTHEMA [None]
